FAERS Safety Report 9092901 (Version 1)
Quarter: 2013Q1

REPORT INFORMATION
  Report Type: Spontaneous
  Country: US (occurrence: US)
  Receive Date: 20130218
  Receipt Date: 20130218
  Transmission Date: 20140127
  Serious: No
  Sender: FDA-Public Use
  Company Number: US-ABBOTT-12P-163-0999587-00

PATIENT
  Sex: Male
  Weight: 79.45 kg

DRUGS (6)
  1. SIMCOR 1000MG/40MG [Suspect]
     Indication: PRODUCT USED FOR UNKNOWN INDICATION
     Dosage: 1000/40 MILLGRAMS
     Dates: start: 2011, end: 2012
  2. NIACIN [Suspect]
     Indication: PRODUCT USED FOR UNKNOWN INDICATION
     Dates: end: 2012
  3. TOPROL XL [Concomitant]
     Indication: HYPERTENSION
  4. PROCARDIA XL [Concomitant]
     Indication: HYPERTENSION
  5. VITAMIN D NOS [Concomitant]
     Indication: PRODUCT USED FOR UNKNOWN INDICATION
  6. CALCIUM [Concomitant]
     Indication: PRODUCT USED FOR UNKNOWN INDICATION

REACTIONS (3)
  - Pruritus [Recovered/Resolved]
  - Rash macular [Recovered/Resolved]
  - Flushing [Recovered/Resolved]
